FAERS Safety Report 20289759 (Version 1)
Quarter: 2022Q1

REPORT INFORMATION
  Report Type: Spontaneous
  Country: US (occurrence: None)
  Receive Date: 20220103
  Receipt Date: 20220103
  Transmission Date: 20220423
  Serious: Yes (unspecified)
  Sender: FDA-Public Use
  Company Number: None

PATIENT
  Age: 62 Year
  Sex: Female
  Weight: 72.6 kg

DRUGS (1)
  1. REGEN-COV [Suspect]
     Active Substance: CASIRIVIMAB\IMDEVIMAB
     Dosage: OTHER FREQUENCY : ONCE;?

REACTIONS (2)
  - Feeling abnormal [None]
  - Paraesthesia [None]

NARRATIVE: CASE EVENT DATE: 20220103
